FAERS Safety Report 5174025-5 (Version None)
Quarter: 2006Q4

REPORT INFORMATION
  Report Type: 
  Country: None (occurrence: None)
  Receive Date: 20061206
  Receipt Date: 20061130
  Transmission Date: 20070319
  Serious: Yes (Other)
  Sender: FDA-Public Use
  Company Number: SPV1-2006-01939

PATIENT
  Age: 8 Year
  Sex: Male
  Weight: 25.4 kg

DRUGS (4)
  1. DAYTRANA (METHYLPHENIDATE) PATCH [Suspect]
     Indication: ATTENTION DEFICIT/HYPERACTIVITY DISORDER
     Dosage: 20 MG, TRANSDERMAL
     Route: 062
     Dates: start: 20060819
  2. REMERON [Concomitant]
  3. ZYRTEC [Concomitant]
  4. SINGULAIR /01362601/ (MONTELUKAST) [Concomitant]

REACTIONS (3)
  - DECREASED APPETITE [None]
  - INSOMNIA [None]
  - VISUAL ACUITY REDUCED [None]
